FAERS Safety Report 23537551 (Version 2)
Quarter: 2024Q2

REPORT INFORMATION
  Report Type: Spontaneous
  Country: US (occurrence: US)
  Receive Date: 20240219
  Receipt Date: 20240613
  Transmission Date: 20240716
  Serious: Yes (Other)
  Sender: FDA-Public Use
  Company Number: US-BEH-2024168726

PATIENT
  Age: 31 Year
  Sex: Male

DRUGS (2)
  1. IDELVION [Suspect]
     Active Substance: COAGULATION FACTOR IX RECOMBINANT HUMAN
     Indication: Acquired haemophilia
     Dosage: 4000 INTERNATIONAL UNIT, QW
     Route: 042
     Dates: start: 202303
  2. IDELVION [Suspect]
     Active Substance: COAGULATION FACTOR IX RECOMBINANT HUMAN
     Indication: Acquired haemophilia
     Dosage: 4000 INTERNATIONAL UNIT, QW
     Route: 042
     Dates: start: 202303

REACTIONS (3)
  - Haemarthrosis [Recovered/Resolved]
  - Product use in unapproved indication [Unknown]
  - Haemarthrosis [Not Recovered/Not Resolved]

NARRATIVE: CASE EVENT DATE: 20240526
